FAERS Safety Report 7993336-9 (Version None)
Quarter: 2011Q4

REPORT INFORMATION
  Report Type: 
  Country: None (occurrence: None)
  Receive Date: 20111219
  Receipt Date: 20110225
  Transmission Date: 20120403
  Serious: No
  Sender: FDA-Public Use
  Company Number: US-ASTRAZENECA-2011SE10846

PATIENT
  Age: 38 Year
  Sex: Female

DRUGS (2)
  1. CRESTOR [Suspect]
     Indication: HYPERCHOLESTEROLAEMIA
     Route: 048
     Dates: start: 20110101, end: 20110201
  2. CRESTOR [Suspect]
     Route: 048
     Dates: start: 20110201

REACTIONS (3)
  - HEAD DISCOMFORT [None]
  - SENSATION OF HEAVINESS [None]
  - NASOPHARYNGITIS [None]
